FAERS Safety Report 21451506 (Version 1)
Quarter: 2022Q4

REPORT INFORMATION
  Report Type: Spontaneous
  Country: HR (occurrence: HR)
  Receive Date: 20221013
  Receipt Date: 20221013
  Transmission Date: 20230113
  Serious: Yes (Other)
  Sender: FDA-Public Use
  Company Number: None

PATIENT
  Sex: Female

DRUGS (4)
  1. OXAZEPAM [Suspect]
     Active Substance: OXAZEPAM
     Indication: Product used for unknown indication
     Dosage: OKSAZEPAM , UNIT DOSE : 30 MG , FREQUENCY TIME : 1 DAY
     Dates: start: 20220828, end: 20220828
  2. OLANZAPINE [Suspect]
     Active Substance: OLANZAPINE
     Indication: Product used for unknown indication
     Dosage: UNIT DOSE : 5 MG , FREQUENCY TIME : 1 DAY
     Dates: start: 20220828, end: 20220828
  3. FLUVOXAMINE MALEATE [Suspect]
     Active Substance: FLUVOXAMINE MALEATE
     Indication: Product used for unknown indication
     Dosage: UNIT DOSE : 100 MG , FREQUENCY TIME : 1 DAY
     Dates: start: 20220828, end: 20220828
  4. RIVOTRIL [Suspect]
     Active Substance: CLONAZEPAM
     Indication: Product used for unknown indication
     Dosage: UNIT DOSE : 1 MG , FREQUENCY TIME : 1 DAY
     Dates: start: 20220828, end: 20220828

REACTIONS (2)
  - Hepatic failure [Unknown]
  - Renal failure [Unknown]

NARRATIVE: CASE EVENT DATE: 20220829
